FAERS Safety Report 5074737-8 (Version None)
Quarter: 2006Q3

REPORT INFORMATION
  Report Type: 
  Country: None (occurrence: None)
  Receive Date: 20060804
  Receipt Date: 20060721
  Transmission Date: 20061208
  Serious: Yes (Hospitalization)
  Sender: FDA-Public Use
  Company Number: 2006BI010357

PATIENT
  Age: 47 Year
  Sex: Female
  Weight: 95.2554 kg

DRUGS (3)
  1. AVONEX [Suspect]
     Indication: MULTIPLE SCLEROSIS
     Dosage: 30- UG QW IM
     Route: 030
     Dates: start: 20060630
  2. LIPITOR [Concomitant]
  3. ALLEGRA [Concomitant]

REACTIONS (5)
  - CEREBRAL HAEMORRHAGE [None]
  - FEMALE ORGASMIC DISORDER [None]
  - MIGRAINE [None]
  - MUSCULOSKELETAL PAIN [None]
  - NECK PAIN [None]
